FAERS Safety Report 4677332-5 (Version None)
Quarter: 2005Q2

REPORT INFORMATION
  Report Type: 
  Country: None (occurrence: None)
  Receive Date: 20050525
  Receipt Date: 20050525
  Transmission Date: 20051028
  Serious: Yes (Disabling)
  Sender: FDA-Public Use
  Company Number: None

PATIENT
  Sex: Male
  Weight: 99.7913 kg

DRUGS (2)
  1. CRESTOR [Suspect]
     Indication: BLOOD CHOLESTEROL INCREASED
     Dosage: 10MG  ONCE PER DAY  ORAL
     Route: 048
     Dates: start: 20040818, end: 20050412
  2. CRESTOR [Suspect]
     Indication: LOW DENSITY LIPOPROTEIN INCREASED
     Dosage: 10MG  ONCE PER DAY  ORAL
     Route: 048
     Dates: start: 20040818, end: 20050412

REACTIONS (4)
  - INSOMNIA [None]
  - PAIN [None]
  - SHOULDER PAIN [None]
  - TENDON DISORDER [None]
